FAERS Safety Report 13365693 (Version 1)
Quarter: 2017Q1

REPORT INFORMATION
  Report Type: Spontaneous
  Country: US (occurrence: US)
  Receive Date: 20170323
  Receipt Date: 20170323
  Transmission Date: 20170429
  Serious: No
  Sender: FDA-Public Use
  Company Number: US-WARNER CHILCOTT-2016-001808

PATIENT
  Sex: Male

DRUGS (1)
  1. ESTRACE [Suspect]
     Active Substance: ESTRADIOL
     Dosage: UNKNOWN
     Route: 050

REACTIONS (4)
  - Skin atrophy [Unknown]
  - Dry skin [Unknown]
  - Erythema [Unknown]
  - Laceration [Unknown]
